FAERS Safety Report 8869342 (Version 1)
Quarter: 2012Q4

REPORT INFORMATION
  Report Type: Spontaneous
  Country: GB (occurrence: None)
  Receive Date: 20121022
  Receipt Date: 20121022
  Transmission Date: 20130627
  Serious: Yes (Life-Threatening, Other)
  Sender: FDA-Public Use
  Company Number: 2012-01531

PATIENT
  Age: 77 Year
  Sex: Male
  Weight: 90 kg

DRUGS (10)
  1. LISINOPRIL [Suspect]
     Indication: HYPERTENSION
     Route: 048
     Dates: end: 20120927
  2. AMLODIPINE (UNKNOWN) [Suspect]
     Route: 048
     Dates: end: 20120927
  3. ALLOPURINOL [Concomitant]
  4. ATENOLOL [Concomitant]
  5. DOXAZOCIN [Concomitant]
  6. GLICLAZIDE [Concomitant]
  7. INDAPAMIDE [Concomitant]
  8. METFORMIN [Concomitant]
  9. PIOGLITAZONE [Concomitant]
  10. SIMVASTATIN [Concomitant]

REACTIONS (3)
  - Respiratory distress [None]
  - Angioedema [None]
  - Dysphonia [None]
